FAERS Safety Report 13380795 (Version 1)
Quarter: 2017Q1

REPORT INFORMATION
  Report Type: Spontaneous
  Country: US (occurrence: US)
  Receive Date: 20170328
  Receipt Date: 20170328
  Transmission Date: 20170429
  Serious: Yes (Hospitalization)
  Sender: FDA-Public Use
  Company Number: None

PATIENT
  Age: 77 Year
  Sex: Female
  Weight: 70.92 kg

DRUGS (1)
  1. PROLIA [Suspect]
     Active Substance: DENOSUMAB
     Indication: OSTEOPOROSIS
     Dosage: ?          OTHER FREQUENCY:6 MONTHS;?
     Route: 003

REACTIONS (4)
  - Swollen tongue [None]
  - Rash [None]
  - Paraesthesia oral [None]
  - Oral pruritus [None]

NARRATIVE: CASE EVENT DATE: 20170328
